FAERS Safety Report 16542001 (Version 1)
Quarter: 2019Q3

REPORT INFORMATION
  Report Type: Report from Study
  Country: US (occurrence: US)
  Receive Date: 20190708
  Receipt Date: 20190708
  Transmission Date: 20191004
  Serious: Yes (Hospitalization, Other)
  Sender: FDA-Public Use
  Company Number: US-EXELIXIS-CABO-19021193

PATIENT
  Sex: Male

DRUGS (1)
  1. CABOMETYX [Suspect]
     Active Substance: CABOZANTINIB S-MALATE
     Indication: RENAL CANCER
     Dosage: 60 MG, QD (IN THE MORNING WITHOUT FOOD)
     Dates: start: 20190424

REACTIONS (15)
  - Swelling face [Not Recovered/Not Resolved]
  - Scrotal exfoliation [Not Recovered/Not Resolved]
  - Weight decreased [Unknown]
  - Pleural effusion [Unknown]
  - Diarrhoea [Not Recovered/Not Resolved]
  - Rash [Recovered/Resolved]
  - Infection [Unknown]
  - Dry mouth [Recovered/Resolved]
  - Skin exfoliation [Recovered/Resolved]
  - Genital tract inflammation [Unknown]
  - Pain in jaw [Recovered/Resolved]
  - Nausea [Recovered/Resolved]
  - Pain in extremity [Not Recovered/Not Resolved]
  - Dizziness [Recovered/Resolved]
  - Acne [Not Recovered/Not Resolved]

NARRATIVE: CASE EVENT DATE: 2019
